FAERS Safety Report 6147134-1 (Version None)
Quarter: 2009Q2

REPORT INFORMATION
  Report Type: 
  Country: None (occurrence: None)
  Receive Date: 20090406
  Receipt Date: 20090327
  Transmission Date: 20091009
  Serious: Yes (Disabling)
  Sender: FDA-Public Use
  Company Number: APP200900172

PATIENT
  Age: 48 Year
  Sex: Male
  Weight: 77.1115 kg

DRUGS (4)
  1. MARCAINE [Suspect]
     Indication: MUSCULOSKELETAL PAIN
     Dosage: 25 ML
     Dates: start: 20040406
  2. BREG PAIN PUMP [Suspect]
     Indication: MUSCULOSKELETAL PAIN
     Dates: start: 20040406
  3. ANESTHETIC [Suspect]
     Indication: MUSCULOSKELETAL PAIN
     Dates: start: 20061204
  4. PAIN PUMP [Suspect]
     Dates: start: 20061204

REACTIONS (10)
  - ATROPHY [None]
  - CHONDROLYSIS [None]
  - CHONDROMALACIA [None]
  - EXOSTOSIS [None]
  - LIPOMA [None]
  - MUSCULOSKELETAL PAIN [None]
  - OSTEOARTHRITIS [None]
  - SYNOVITIS [None]
  - TENDON RUPTURE [None]
  - TENDONITIS [None]
